FAERS Safety Report 21094963 (Version 1)
Quarter: 2022Q3

REPORT INFORMATION
  Report Type: Spontaneous
  Country: US (occurrence: None)
  Receive Date: 20220716
  Receipt Date: 20220716
  Transmission Date: 20221027
  Serious: No
  Sender: FDA-Public Use
  Company Number: None

PATIENT
  Age: 50 Year
  Sex: Female
  Weight: 65.25 kg

DRUGS (9)
  1. CITROMA [Suspect]
     Active Substance: MAGNESIUM CITRATE
     Indication: Bowel preparation
     Dosage: OTHER QUANTITY : 1 BOTTLE;?FREQUENCY : AS NEEDED;?
     Route: 048
     Dates: start: 20220601, end: 20220601
  2. SYNTHROID [Concomitant]
     Active Substance: LEVOTHYROXINE SODIUM
  3. TRIAMTERENE [Concomitant]
     Active Substance: TRIAMTERENE
  4. LUNESTA [Concomitant]
     Active Substance: ESZOPICLONE
  5. Hydrochoroquin [Concomitant]
  6. FIBER [Concomitant]
     Active Substance: PSYLLIUM HUSK
  7. VITAMIN D NOS [Concomitant]
     Active Substance: VITAMIN D NOS
  8. BIOTIN [Concomitant]
     Active Substance: BIOTIN
  9. MAGNESIUM [Concomitant]
     Active Substance: MAGNESIUM

REACTIONS (3)
  - Urinary tract infection [None]
  - Blood urine present [None]
  - Infection in an immunocompromised host [None]

NARRATIVE: CASE EVENT DATE: 20220603
